FAERS Safety Report 23135972 (Version 1)
Quarter: 2023Q4

REPORT INFORMATION
  Report Type: Spontaneous
  Country: US (occurrence: US)
  Receive Date: 20231102
  Receipt Date: 20231102
  Transmission Date: 20240109
  Serious: Yes (Death, Other)
  Sender: FDA-Public Use
  Company Number: US-BRISTOL-MYERS SQUIBB COMPANY-2023-156012

PATIENT
  Age: 83 Year
  Sex: Female

DRUGS (6)
  1. ELIQUIS [Suspect]
     Active Substance: APIXABAN
     Indication: Product used for unknown indication
     Route: 048
  2. POTASSIUM [Concomitant]
     Active Substance: POTASSIUM
     Indication: Product used for unknown indication
     Dates: start: 2021
  3. MAGNESIUM [Concomitant]
     Active Substance: MAGNESIUM
     Indication: Product used for unknown indication
     Dates: start: 2021
  4. KETOROLAC [Concomitant]
     Active Substance: KETOROLAC TROMETHAMINE
     Indication: Product used for unknown indication
     Dates: start: 2021
  5. CHOLECALCIFEROL [Concomitant]
     Active Substance: CHOLECALCIFEROL
     Indication: Product used for unknown indication
     Dates: start: 2021
  6. AMIODARONE [Concomitant]
     Active Substance: AMIODARONE
     Indication: Product used for unknown indication
     Dates: start: 2021

REACTIONS (1)
  - Death [Fatal]
